FAERS Safety Report 22235021 (Version 1)
Quarter: 2023Q2

REPORT INFORMATION
  Report Type: Spontaneous
  Country: US (occurrence: None)
  Receive Date: 20230419
  Receipt Date: 20230419
  Transmission Date: 20230721
  Serious: No
  Sender: FDA-Public Use
  Company Number: None

PATIENT
  Age: 62 Year
  Sex: Female
  Weight: 54 kg

DRUGS (1)
  1. TRUXIMA [Suspect]
     Active Substance: RITUXIMAB-ABBS
     Indication: Pemphigus
     Dosage: 1000 MG DAY 1 OF INJECTION INTRAVENOUS?
     Route: 042
     Dates: start: 20230415

REACTIONS (12)
  - Nausea [None]
  - Fatigue [None]
  - Peripheral swelling [None]
  - Peripheral swelling [None]
  - Swelling face [None]
  - Swelling [None]
  - Weight increased [None]
  - Flushing [None]
  - Heart rate increased [None]
  - Tremor [None]
  - Pain [None]
  - Asthenia [None]

NARRATIVE: CASE EVENT DATE: 20230415
